FAERS Safety Report 24360973 (Version 1)
Quarter: 2024Q3

REPORT INFORMATION
  Report Type: Spontaneous
  Country: ES (occurrence: ES)
  Receive Date: 20240925
  Receipt Date: 20240925
  Transmission Date: 20241016
  Serious: Yes (Other)
  Sender: AUROBINDO
  Company Number: ES-AMGEN-ESPSP2018063320

PATIENT
  Age: 27 Year
  Sex: Female

DRUGS (1)
  1. CINACALCET [Suspect]
     Active Substance: CINACALCET
     Indication: Hyperparathyroidism secondary
     Dosage: UNK
     Route: 065

REACTIONS (9)
  - Exophthalmos [Not Recovered/Not Resolved]
  - Optic neuropathy [Not Recovered/Not Resolved]
  - Visual impairment [Unknown]
  - Arterial occlusive disease [Unknown]
  - Eye luxation [Unknown]
  - Brown tumour [Unknown]
  - Blood parathyroid hormone decreased [Unknown]
  - Hungry bone syndrome [Unknown]
  - Drug ineffective [Unknown]
